FAERS Safety Report 13504706 (Version 1)
Quarter: 2017Q2

REPORT INFORMATION
  Report Type: Spontaneous
  Country: AU (occurrence: AU)
  Receive Date: 20170502
  Receipt Date: 20170502
  Transmission Date: 20170830
  Serious: Yes (Death, Hospitalization)
  Sender: FDA-Public Use
  Company Number: AU-OREXO US, INC.-ORE201704-000048

PATIENT
  Age: 92 Year
  Sex: Female

DRUGS (4)
  1. BUPRENORPHINE. [Suspect]
     Active Substance: BUPRENORPHINE
     Indication: PRODUCT USE IN UNAPPROVED INDICATION
     Dosage: 200 UG AT FIVE HOURS AFTER ADMISSION
  2. BUPRENORPHINE. [Suspect]
     Active Substance: BUPRENORPHINE
     Dosage: 200 UG AT 8 HOURS AFTER ADMISSION
  3. ACETAMINOPHEN AND CODEINE [Concomitant]
     Active Substance: ACETAMINOPHEN\CODEINE PHOSPHATE
     Indication: PAIN
     Dosage: 1 G/60 MG
  4. IBUPROFEN. [Concomitant]
     Active Substance: IBUPROFEN
     Indication: PAIN
     Dosage: 1G/60 MG

REACTIONS (6)
  - Product use in unapproved indication [Unknown]
  - Respiratory acidosis [Unknown]
  - Pneumonia aspiration [Unknown]
  - Respiratory depression [Unknown]
  - Death [Fatal]
  - Depressed level of consciousness [Unknown]
